FAERS Safety Report 7954086-8 (Version None)
Quarter: 2011Q4

REPORT INFORMATION
  Report Type: 
  Country: None (occurrence: None)
  Receive Date: 20111202
  Receipt Date: 20111128
  Transmission Date: 20120403
  Serious: Yes (Other)
  Sender: FDA-Public Use
  Company Number: NL-AMGEN-NLDSP2011062660

PATIENT
  Age: 84 Year
  Sex: Female

DRUGS (2)
  1. ARANESP [Suspect]
     Indication: PRODUCT USED FOR UNKNOWN INDICATION
     Dosage: 40 MUG, Q2WK
     Dates: start: 20110929
  2. ANTIBIOTICS [Concomitant]
     Indication: HERPES ZOSTER

REACTIONS (2)
  - WEIGHT DECREASED [None]
  - CONFUSIONAL STATE [None]
